FAERS Safety Report 11344758 (Version 2)
Quarter: 2015Q3

REPORT INFORMATION
  Report Type: Spontaneous
  Country: US (occurrence: US)
  Receive Date: 20150806
  Receipt Date: 20150819
  Transmission Date: 20151125
  Serious: Yes (Hospitalization, Other)
  Sender: FDA-Public Use
  Company Number: US-GLAXOSMITHKLINE-US2015111904

PATIENT
  Sex: Male

DRUGS (1)
  1. ADVAIR DISKUS [Suspect]
     Active Substance: FLUTICASONE PROPIONATE\SALMETEROL XINAFOATE
     Indication: SLEEP APNOEA SYNDROME
     Dosage: 1 PUFF(S), BID

REACTIONS (5)
  - Cardiac disorder [Unknown]
  - Lung operation [Unknown]
  - Pneumonectomy [Recovered/Resolved]
  - Myocardial infarction [Recovered/Resolved]
  - Off label use [Unknown]

NARRATIVE: CASE EVENT DATE: 2012
